FAERS Safety Report 17680122 (Version 1)
Quarter: 2020Q2

REPORT INFORMATION
  Report Type: Spontaneous
  Country: BR (occurrence: BR)
  Receive Date: 20200417
  Receipt Date: 20200417
  Transmission Date: 20200714
  Serious: Yes (Other)
  Sender: FDA-Public Use
  Company Number: BR-SA-2020SA098489

PATIENT
  Age: 74 Year
  Sex: Female
  Weight: 53 kg

DRUGS (2)
  1. PRALUENT [Suspect]
     Active Substance: ALIROCUMAB
     Dosage: 1 PEN PER MONTH
  2. PRALUENT [Suspect]
     Active Substance: ALIROCUMAB
     Indication: BLOOD CHOLESTEROL ABNORMAL
     Dosage: 1 PEN EVERY 15 DAYS
     Route: 058
     Dates: start: 2018, end: 201912

REACTIONS (2)
  - Drug dependence [Unknown]
  - Product use issue [Unknown]
